FAERS Safety Report 5946777-5 (Version None)
Quarter: 2008Q4

REPORT INFORMATION
  Report Type: 
  Country: None (occurrence: None)
  Receive Date: 20081110
  Receipt Date: 20081031
  Transmission Date: 20090506
  Serious: Yes (Other)
  Sender: FDA-Public Use
  Company Number: JP-MERCK-0810USA01687

PATIENT
  Age: 56 Year
  Sex: Male

DRUGS (4)
  1. PEPCID [Suspect]
     Indication: GASTRITIS
     Route: 048
     Dates: start: 19900512, end: 20080911
  2. GASLON [Concomitant]
     Indication: GASTRITIS
     Route: 048
     Dates: start: 19900512, end: 20020430
  3. APLACE [Concomitant]
     Indication: GASTRITIS
     Route: 048
     Dates: start: 20020501, end: 20040418
  4. TROXSIN [Concomitant]
     Indication: GASTRITIS
     Route: 048
     Dates: start: 20040419

REACTIONS (2)
  - TRANSIENT ISCHAEMIC ATTACK [None]
  - WHITE BLOOD CELL COUNT INCREASED [None]
